FAERS Safety Report 6074432-2 (Version None)
Quarter: 2009Q1

REPORT INFORMATION
  Report Type: 
  Country: None (occurrence: None)
  Receive Date: 20090206
  Receipt Date: 20090108
  Transmission Date: 20090719
  Serious: Yes (Death)
  Sender: FDA-Public Use
  Company Number: 1000003735

PATIENT
  Age: 49 Year
  Sex: Female

DRUGS (6)
  1. ESCITALOPRAM [Suspect]
  2. ACETAMINOPHEN [Suspect]
  3. DEXTROPROPOXYPHENE [Suspect]
  4. BENZODIAZEPINES [Suspect]
  5. MELOXICAM [Suspect]
  6. CELECOXIB [Suspect]

REACTIONS (2)
  - CARDIO-RESPIRATORY ARREST [None]
  - COMPLETED SUICIDE [None]
